FAERS Safety Report 6355615-0 (Version None)
Quarter: 2009Q3

REPORT INFORMATION
  Report Type: 
  Country: None (occurrence: None)
  Receive Date: 20090909
  Receipt Date: 20090902
  Transmission Date: 20100115
  Serious: Yes (Other)
  Sender: FDA-Public Use
  Company Number: WAES 0909USA00484

PATIENT
  Age: 86 Year
  Sex: Female

DRUGS (5)
  1. FOSAMAX [Suspect]
     Indication: OSTEOPOROSIS
     Dosage: 35 MG/WKY PO
     Route: 048
     Dates: start: 20070306, end: 20080603
  2. ALFAROL [Concomitant]
  3. OPALMON [Concomitant]
  4. PEON [Concomitant]
  5. MECOBALAMIN [Concomitant]

REACTIONS (1)
  - RENAL IMPAIRMENT [None]
